FAERS Safety Report 13078516 (Version 1)
Quarter: 2017Q1

REPORT INFORMATION
  Report Type: Other
  Country: DE (occurrence: DE)
  Receive Date: 20170102
  Receipt Date: 20170102
  Transmission Date: 20170428
  Serious: Yes (Congenital Anomaly, Other)
  Sender: FDA-Public Use
  Company Number: DE-LUPIN PHARMACEUTICALS INC.-E2B_00006968

PATIENT
  Age: 1 Day
  Sex: Male
  Weight: 3.49 kg

DRUGS (9)
  1. UTROGESTAN [Suspect]
     Active Substance: PROGESTERONE
     Indication: ASSISTED FERTILISATION
     Route: 064
  2. MERIESTRA [Suspect]
     Active Substance: ESTRADIOL VALERATE
     Indication: ASSISTED FERTILISATION
     Route: 064
  3. PREDNISONE. [Concomitant]
     Active Substance: PREDNISONE
     Indication: ASSISTED FERTILISATION
     Route: 064
  4. PARACETAMOL 500 [Concomitant]
     Active Substance: ACETAMINOPHEN
     Indication: HEADACHE
     Dosage: 500 [MG/D ]/ 3 TIMES: WEEK 17, 18, AND 22
     Route: 064
  5. CLEXANE [Concomitant]
     Active Substance: ENOXAPARIN SODIUM
     Indication: ASSISTED FERTILISATION
     Route: 064
  6. SERTRALINE [Suspect]
     Active Substance: SERTRALINE HYDROCHLORIDE
     Indication: ANXIETY DISORDER
     Route: 064
     Dates: start: 20151006, end: 20160714
  7. TAVOR (LORAZEPAM) [Concomitant]
     Active Substance: LORAZEPAM
     Indication: ANXIETY DISORDER
     Dosage: 1 [MG/D ]/ EIGHT TIMES BETWEEN WEEK 12 1/7 AND WEEK 33.
     Route: 064
     Dates: start: 20151230, end: 20160524
  8. ADIRO [Concomitant]
     Active Substance: ASPIRIN
     Indication: ASSISTED FERTILISATION
     Route: 064
  9. ORTHOMOL NATAL [Concomitant]
     Indication: PROPHYLAXIS OF NEURAL TUBE DEFECT
     Route: 064
     Dates: start: 20151006, end: 20160714

REACTIONS (5)
  - Meconium in amniotic fluid [Not Recovered/Not Resolved]
  - Foetal exposure during pregnancy [Unknown]
  - Hypospadias [Not Recovered/Not Resolved]
  - Amniotic cavity infection [Not Recovered/Not Resolved]
  - Congenital skin dimples [Not Recovered/Not Resolved]

NARRATIVE: CASE EVENT DATE: 20160714
